FAERS Safety Report 18307309 (Version 11)
Quarter: 2021Q4

REPORT INFORMATION
  Report Type: Spontaneous
  Country: US (occurrence: US)
  Receive Date: 20200924
  Receipt Date: 20211229
  Transmission Date: 20220303
  Serious: No
  Sender: FDA-Public Use
  Company Number: US-PFIZER INC-2020352270

PATIENT
  Age: 4 Year
  Sex: Female
  Weight: 14.97 kg

DRUGS (1)
  1. GENOTROPIN [Suspect]
     Active Substance: SOMATROPIN
     Indication: Growth hormone deficiency
     Dosage: 0.4 MG, DAILY (0.4 MG/DAY, 7 DAYS/WK)
     Route: 058
     Dates: start: 20200910

REACTIONS (5)
  - Product quality issue [Unknown]
  - Device leakage [Unknown]
  - Poor quality device used [Unknown]
  - Device breakage [Unknown]
  - Drug dose omission by device [Unknown]

NARRATIVE: CASE EVENT DATE: 20200910
